FAERS Safety Report 8976641 (Version 1)
Quarter: 2012Q4

REPORT INFORMATION
  Report Type: 
  Country: US (occurrence: US)
  Receive Date: 20121220
  Receipt Date: 20121220
  Transmission Date: 20130627
  Serious: Yes (Other)
  Sender: FDA-Public Use
  Company Number: US-PFIZER INC-2012319405

PATIENT
  Sex: Female

DRUGS (1)
  1. CHILDREN^S ADVIL [Suspect]
     Indication: FEVER
     Dosage: UNK

REACTIONS (6)
  - Hypersensitivity [Unknown]
  - Swelling face [Unknown]
  - Swelling [Unknown]
  - Urticaria [Unknown]
  - Oedema peripheral [Unknown]
  - Lip swelling [Unknown]
